FAERS Safety Report 16544557 (Version 1)
Quarter: 2019Q3

REPORT INFORMATION
  Report Type: Spontaneous
  Country: FR (occurrence: FR)
  Receive Date: 20190709
  Receipt Date: 20190709
  Transmission Date: 20191004
  Serious: Yes (Other)
  Sender: FDA-Public Use
  Company Number: FR-CURIUM-201900328

PATIENT
  Age: 66 Year
  Sex: Female
  Weight: 52 kg

DRUGS (5)
  1. RALOXIFENE 60 MG [Concomitant]
     Active Substance: RALOXIFENE
     Indication: OSTEOPOROSIS
     Dosage: 60 MG/TABLET
     Route: 065
  2. TECHNESCAN MAG3 [Suspect]
     Active Substance: TECHNETIUM TC-99M TIATIDE
     Indication: RENAL SCAN
     Route: 042
     Dates: start: 20190625, end: 20190625
  3. TECHNESCAN MAG3 [Suspect]
     Active Substance: TECHNETIUM TC-99M TIATIDE
     Indication: RENAL SCAN
     Route: 042
     Dates: start: 20190627, end: 20190627
  4. ULTRA-TECHNEKOW FM [Suspect]
     Active Substance: TECHNETIUM TC-99M SODIUM PERTECHNETATE
     Indication: RENAL SCAN
     Route: 042
     Dates: start: 20190627, end: 20190627
  5. ULTRA-TECHNEKOW FM [Suspect]
     Active Substance: TECHNETIUM TC-99M SODIUM PERTECHNETATE
     Indication: RENAL SCAN
     Route: 042
     Dates: start: 20190625, end: 20190625

REACTIONS (3)
  - Radiation overdose [Recovered/Resolved]
  - Drug ineffective [Not Recovered/Not Resolved]
  - Renal scan abnormal [Not Recovered/Not Resolved]

NARRATIVE: CASE EVENT DATE: 20190625
